FAERS Safety Report 6232288-9 (Version None)
Quarter: 2009Q2

REPORT INFORMATION
  Report Type: 
  Country: None (occurrence: None)
  Receive Date: 20090617
  Receipt Date: 20090608
  Transmission Date: 20091009
  Serious: No
  Sender: FDA-Public Use
  Company Number: US-JNJFOC-20090603617

PATIENT
  Sex: Female
  Weight: 56.7 kg

DRUGS (8)
  1. FENTANYL TRANSDERMAL SYSTEM [Suspect]
     Indication: BACK PAIN
     Route: 062
  2. FLEXERIL [Concomitant]
     Indication: MUSCLE SPASMS
     Route: 048
  3. DOXEPIN [Concomitant]
     Indication: SLEEP DISORDER THERAPY
     Dosage: 2 TABLETS EACH NIGHT
     Route: 048
  4. DILTIAZEM [Concomitant]
     Indication: CARDIAC DISORDER
     Route: 048
  5. CITALOPRAM HYDROBROMIDE [Concomitant]
     Indication: DEPRESSION
     Route: 048
  6. SONATA [Concomitant]
     Indication: SLEEP DISORDER THERAPY
     Route: 048
  7. EQUATE (ACID REDUCTION) [Concomitant]
     Indication: ANTACID THERAPY
     Route: 048
  8. IBUPROFEN [Concomitant]
     Indication: PAIN
     Route: 048

REACTIONS (4)
  - DRUG SCREEN NEGATIVE [None]
  - HYPOKALAEMIA [None]
  - NEUROPATHY PERIPHERAL [None]
  - WRONG TECHNIQUE IN DRUG USAGE PROCESS [None]
